FAERS Safety Report 16925009 (Version 4)
Quarter: 2019Q4

REPORT INFORMATION
  Report Type: Spontaneous
  Country: US (occurrence: US)
  Receive Date: 20191016
  Receipt Date: 20191121
  Transmission Date: 20200122
  Serious: No
  Sender: FDA-Public Use
  Company Number: US-PFIZER INC-2019365285

PATIENT
  Age: 66 Year
  Sex: Male

DRUGS (3)
  1. SUTENT [Suspect]
     Active Substance: SUNITINIB MALATE
     Indication: PANCREATIC NEUROENDOCRINE TUMOUR
     Dosage: 37.5 MG, CYCLIC (1 CAPSULE DAILY X 21 DAYS, OFF 7 DAYS)
     Route: 048
  2. SUTENT [Suspect]
     Active Substance: SUNITINIB MALATE
     Dosage: 25 MG, CYCLIC (1 CAPSULE DAILY FOR 21 DAYS. THEN 7 DAYS OFF)
     Route: 048
     Dates: start: 20191010
  3. SUTENT [Suspect]
     Active Substance: SUNITINIB MALATE
     Dosage: 25 MG, CYCLIC (1 CAPSULE DAILY FOR 21 DAYS. THEN 7 DAYS OFF)
     Route: 048
     Dates: start: 20191108

REACTIONS (2)
  - Auditory disorder [Unknown]
  - Oral pain [Unknown]
